FAERS Safety Report 4565529-4 (Version None)
Quarter: 2005Q1

REPORT INFORMATION
  Report Type: 
  Country: None (occurrence: None)
  Receive Date: 20050131
  Receipt Date: 20050119
  Transmission Date: 20050727
  Serious: Yes (Other)
  Sender: FDA-Public Use
  Company Number: NA-GLAXOSMITHKLINE-B0366028A

PATIENT
  Age: 36 Year
  Sex: Male

DRUGS (2)
  1. ZYBAN [Suspect]
     Route: 065
     Dates: start: 20041214, end: 20041221
  2. NO CONCURRENT MEDICATION [Concomitant]

REACTIONS (1)
  - VISUAL DISTURBANCE [None]
